FAERS Safety Report 7205909-1 (Version None)
Quarter: 2011Q1

REPORT INFORMATION
  Report Type: 
  Country: None (occurrence: None)
  Receive Date: 20110101
  Receipt Date: 20101221
  Transmission Date: 20110831
  Serious: Yes (Other)
  Sender: FDA-Public Use
  Company Number: US-PURDUE-USA-2010-0060882

PATIENT
  Sex: Male

DRUGS (2)
  1. OXYCODONE HCL [Suspect]
     Indication: PAIN
     Dosage: 80 MG, UNK
  2. OXYCONTIN [Suspect]
     Indication: PAIN
     Dosage: 80 MG, UNK

REACTIONS (5)
  - ROAD TRAFFIC ACCIDENT [None]
  - SKIN INJURY [None]
  - MUSCULAR WEAKNESS [None]
  - JOINT DISLOCATION [None]
  - HYPOAESTHESIA [None]
